FAERS Safety Report 17305964 (Version 3)
Quarter: 2020Q1

REPORT INFORMATION
  Report Type: Spontaneous
  Country: US (occurrence: US)
  Receive Date: 20200123
  Receipt Date: 20200327
  Transmission Date: 20200409
  Serious: No
  Sender: FDA-Public Use
  Company Number: US-009507513-2001USA005017

PATIENT
  Sex: Female

DRUGS (1)
  1. NEXPLANON [Suspect]
     Active Substance: ETONOGESTREL
     Indication: CONTRACEPTION
     Dosage: 1 IMPLANT, ONCE
     Route: 059
     Dates: start: 201803, end: 201905

REACTIONS (5)
  - Menorrhagia [Unknown]
  - Menstruation irregular [Unknown]
  - Product quality issue [Unknown]
  - Dysmenorrhoea [Unknown]
  - Medical procedure [Unknown]

NARRATIVE: CASE EVENT DATE: 2018
